FAERS Safety Report 8858273 (Version 1)
Quarter: 2012Q4

REPORT INFORMATION
  Report Type: 
  Country: US (occurrence: US)
  Receive Date: 20121024
  Receipt Date: 20121024
  Transmission Date: 20130627
  Serious: No
  Sender: FDA-Public Use
  Company Number: US-AMGEN-USASP2011069806

PATIENT
  Sex: Female
  Weight: 104.31 kg

DRUGS (12)
  1. ENBREL [Suspect]
     Indication: PRODUCT USED FOR UNKNOWN INDICATION
     Dosage: 50 mg, qwk
     Route: 058
  2. CYMBALTA [Concomitant]
     Dosage: 20 mg, UNK
  3. XANAX [Concomitant]
     Dosage: 0.25 mg, UNK
  4. TRAMADOL HCL [Concomitant]
     Dosage: 50 mg, UNK
  5. OXAPROZIN [Concomitant]
     Dosage: 600 mg, UNK
  6. BACLOFEN [Concomitant]
     Dosage: 10 mg, UNK
  7. LAMICTAL [Concomitant]
     Dosage: 25 mg, UNK
  8. PRILOSEC                           /00661201/ [Concomitant]
     Dosage: 10 mg, UNK
  9. TOPROL [Concomitant]
     Dosage: 25 mg, UNK
  10. TEMAZEPAM [Concomitant]
     Dosage: 7.5 mg, UNK
  11. FISH OIL [Concomitant]
  12. COLCRYS [Concomitant]
     Dosage: 0.6 mg, UNK

REACTIONS (2)
  - White blood cell count increased [Unknown]
  - Sinusitis [Unknown]
